FAERS Safety Report 11913410 (Version 2)
Quarter: 2016Q2

REPORT INFORMATION
  Report Type: Spontaneous
  Country: US (occurrence: US)
  Receive Date: 20160113
  Receipt Date: 20160523
  Transmission Date: 20160815
  Serious: No
  Sender: FDA-Public Use
  Company Number: US-NAVIDEA BIOPHARMACEUTICALS-NVUS1600-15-00046

PATIENT
  Sex: Female

DRUGS (1)
  1. LYMPHOSEEK [Suspect]
     Active Substance: TECHNETIUM TC-99M TILMANOCEPT
     Indication: LYMPHATIC MAPPING
     Route: 023
     Dates: start: 20150731, end: 20150731

REACTIONS (2)
  - Rash pruritic [None]
  - Injection site pain [None]

NARRATIVE: CASE EVENT DATE: 20150731
